FAERS Safety Report 4503024-9 (Version None)
Quarter: 2004Q4

REPORT INFORMATION
  Report Type: 
  Country: None (occurrence: None)
  Receive Date: 20041112
  Receipt Date: 20041105
  Transmission Date: 20050328
  Serious: Yes (Other)
  Sender: FDA-Public Use
  Company Number: 2004-11-0266

PATIENT
  Sex: Female

DRUGS (3)
  1. CLARINEX [Suspect]
     Indication: RHINITIS ALLERGIC
     Dosage: 1 TAB QD ORAL
     Route: 048
  2. GINKOR [Concomitant]
  3. CYSTINE B6 BAILLEUL [Concomitant]

REACTIONS (3)
  - HYPERTENSIVE CRISIS [None]
  - NAUSEA [None]
  - PALPITATIONS [None]
